FAERS Safety Report 9993517 (Version 5)
Quarter: 2014Q2

REPORT INFORMATION
  Report Type: Spontaneous
  Country: US (occurrence: US)
  Receive Date: 20140310
  Receipt Date: 20140416
  Transmission Date: 20141212
  Serious: Yes (Other)
  Sender: FDA-Public Use
  Company Number: CHPA2014US003632

PATIENT
  Age: 75 Year
  Sex: Female

DRUGS (1)
  1. LAMISIL AT CREAM UNKNOWN AF OR JI [Suspect]
     Indication: TINEA PEDIS
     Dosage: UNK, BID
     Route: 061

REACTIONS (2)
  - Diabetes mellitus [Not Recovered/Not Resolved]
  - Drug ineffective [Unknown]
